FAERS Safety Report 19770793 (Version 1)
Quarter: 2021Q3

REPORT INFORMATION
  Report Type: Report from Study
  Country: RU (occurrence: RU)
  Receive Date: 20210901
  Receipt Date: 20210901
  Transmission Date: 20211014
  Serious: Yes (Other)
  Sender: FDA-Public Use
  Company Number: RU-ASTELLAS-2021US032377

PATIENT
  Sex: Male

DRUGS (9)
  1. DUTASTERIDE. [Suspect]
     Active Substance: DUTASTERIDE
     Indication: HYPERTONIC BLADDER
  2. SOLIFENACIN [Suspect]
     Active Substance: SOLIFENACIN
     Indication: BENIGN PROSTATIC HYPERPLASIA
     Dosage: UNK UNK, UNKNOWN FREQ.
     Route: 065
  3. DUTASTERIDE. [Suspect]
     Active Substance: DUTASTERIDE
     Indication: BENIGN PROSTATIC HYPERPLASIA
     Dosage: UNK UNK, UNKNOWN FREQ.
     Route: 065
  4. SOLIFENACIN [Suspect]
     Active Substance: SOLIFENACIN
     Indication: URINARY TRACT OBSTRUCTION
  5. DUTASTERIDE. [Suspect]
     Active Substance: DUTASTERIDE
     Indication: URINARY TRACT OBSTRUCTION
  6. TADALAFIL. [Suspect]
     Active Substance: TADALAFIL
     Indication: BENIGN PROSTATIC HYPERPLASIA
     Dosage: UNK UNK, UNKNOWN FREQ.
     Route: 065
  7. TADALAFIL. [Suspect]
     Active Substance: TADALAFIL
     Indication: HYPERTONIC BLADDER
  8. SOLIFENACIN [Suspect]
     Active Substance: SOLIFENACIN
     Indication: HYPERTONIC BLADDER
  9. TADALAFIL. [Suspect]
     Active Substance: TADALAFIL
     Indication: URINARY TRACT OBSTRUCTION

REACTIONS (1)
  - Angina pectoris [Unknown]
